FAERS Safety Report 7618355-3 (Version None)
Quarter: 2011Q3

REPORT INFORMATION
  Report Type: 
  Country: None (occurrence: None)
  Receive Date: 20110718
  Receipt Date: 20110707
  Transmission Date: 20111222
  Serious: Yes (Other)
  Sender: FDA-Public Use
  Company Number: PHHY2011DE61174

PATIENT
  Sex: Female
  Weight: 60 kg

DRUGS (1)
  1. VOLTAREN [Suspect]
     Indication: ARTHRALGIA
     Dosage: 1 DF, UNK
     Route: 048
     Dates: start: 20110628, end: 20110628

REACTIONS (5)
  - DIZZINESS [None]
  - CIRCULATORY COLLAPSE [None]
  - BLOOD PRESSURE DECREASED [None]
  - DYSPNOEA [None]
  - ANAPHYLACTIC REACTION [None]
